FAERS Safety Report 8346168-6 (Version None)
Quarter: 2012Q2

REPORT INFORMATION
  Report Type: 
  Country: None (occurrence: None)
  Receive Date: 20120507
  Receipt Date: 20120427
  Transmission Date: 20120825
  Serious: Yes (Hospitalization)
  Sender: FDA-Public Use
  Company Number: UTC-017739

PATIENT
  Age: 68 Year
  Sex: Male

DRUGS (7)
  1. TYVASO [Suspect]
     Indication: COR PULMONALE CHRONIC
     Dosage: 96 MCG (24 MCG, 4 IN 1 D), INHALATION
     Route: 055
     Dates: start: 20120106
  2. INDOMETHACIN [Concomitant]
  3. TRAMADOL HCL [Concomitant]
  4. PREDNISONE TAB [Concomitant]
  5. LETAIRIS [Concomitant]
  6. BYSTOLIC [Concomitant]
  7. LORAZEPAM [Concomitant]

REACTIONS (1)
  - INTERSTITIAL LUNG DISEASE [None]
